FAERS Safety Report 13343127 (Version 1)
Quarter: 2017Q1

REPORT INFORMATION
  Report Type: Spontaneous
  Country: US (occurrence: US)
  Receive Date: 20170316
  Receipt Date: 20170316
  Transmission Date: 20170428
  Serious: Yes (Other)
  Sender: FDA-Public Use
  Company Number: US-PFIZER INC-2017113198

PATIENT
  Age: 29 Year
  Sex: Female
  Weight: 57 kg

DRUGS (1)
  1. LYRICA [Suspect]
     Active Substance: PREGABALIN
     Indication: FIBROMYALGIA
     Dosage: 150 MG, 3X/DAY
     Dates: start: 2016, end: 201603

REACTIONS (5)
  - Seizure [Unknown]
  - Abdominal pain upper [Unknown]
  - Dizziness [Unknown]
  - Craniocerebral injury [Unknown]
  - Gastric disorder [Unknown]

NARRATIVE: CASE EVENT DATE: 201601
